FAERS Safety Report 4478264-8 (Version None)
Quarter: 2004Q4

REPORT INFORMATION
  Report Type: 
  Country: None (occurrence: None)
  Receive Date: 20041018
  Receipt Date: 20041018
  Transmission Date: 20050328
  Serious: Yes (Hospitalization)
  Sender: FDA-Public Use
  Company Number: None

PATIENT
  Sex: Male

DRUGS (9)
  1. LISINOPRIL [Suspect]
     Indication: HYPERTENSION
     Dosage: 20 MG QD
  2. CLINDAMYCIN HCL [Concomitant]
  3. HYDROCHLOROTHIAZIDE [Concomitant]
  4. GLYBURIDE AND METFORMIN HCL [Concomitant]
  5. COMBIVENT [Concomitant]
  6. METOPROLOL [Concomitant]
  7. TRIAMCINCLONE [Concomitant]
  8. ASPIRIN [Concomitant]
  9. SIMVASTATIN [Concomitant]

REACTIONS (1)
  - ANGIONEUROTIC OEDEMA [None]
